FAERS Safety Report 6578682-8 (Version None)
Quarter: 2010Q1

REPORT INFORMATION
  Report Type: 
  Country: None (occurrence: None)
  Receive Date: 20100202
  Receipt Date: 20100128
  Transmission Date: 20100710
  Serious: Yes (Other)
  Sender: FDA-Public Use
  Company Number: A0841800A

PATIENT
  Age: 87 Year
  Sex: Male

DRUGS (1)
  1. UREA PEROXIDE [Suspect]

REACTIONS (2)
  - DEAFNESS [None]
  - EAR DISCOMFORT [None]
